FAERS Safety Report 6595349-0 (Version None)
Quarter: 2010Q1

REPORT INFORMATION
  Report Type: 
  Country: None (occurrence: None)
  Receive Date: 20100223
  Receipt Date: 20100210
  Transmission Date: 20100710
  Serious: Yes (Hospitalization)
  Sender: FDA-Public Use
  Company Number: US-BIOGENIDEC-2010BI003036

PATIENT
  Age: 52 Year
  Sex: Female

DRUGS (22)
  1. TYSABRI [Suspect]
     Indication: MULTIPLE SCLEROSIS
     Route: 042
     Dates: start: 20080201, end: 20081020
  2. TYSABRI [Suspect]
     Route: 042
     Dates: start: 20090612, end: 20090807
  3. TYLENOL-500 [Concomitant]
     Indication: DRUG USE FOR UNKNOWN INDICATION
  4. DULCOLAX [Concomitant]
     Indication: DRUG USE FOR UNKNOWN INDICATION
     Route: 054
  5. DULCOLAX [Concomitant]
     Route: 048
  6. COLACE [Concomitant]
     Indication: DRUG USE FOR UNKNOWN INDICATION
  7. LACTULOSE [Concomitant]
     Indication: DRUG USE FOR UNKNOWN INDICATION
  8. REGLAN [Concomitant]
     Indication: DRUG USE FOR UNKNOWN INDICATION
  9. MIRALAX [Concomitant]
     Indication: DRUG USE FOR UNKNOWN INDICATION
  10. CYMBALTA [Concomitant]
     Indication: DRUG USE FOR UNKNOWN INDICATION
  11. NITROFURANTOIN [Concomitant]
     Indication: PROPHYLAXIS URINARY TRACT INFECTION
     Route: 048
  12. NEURONTIN [Concomitant]
     Indication: DRUG USE FOR UNKNOWN INDICATION
  13. NEURONTIN [Concomitant]
  14. FISH OIL [Concomitant]
     Indication: SUPPLEMENTATION THERAPY
  15. VITAMIN C [Concomitant]
     Indication: SUPPLEMENTATION THERAPY
  16. BACLOFEN [Concomitant]
     Indication: RESTLESS LEGS SYNDROME
     Route: 048
  17. BACLOFEN [Concomitant]
  18. KLONOPIN [Concomitant]
     Indication: DRUG USE FOR UNKNOWN INDICATION
     Route: 048
  19. KLONOPIN [Concomitant]
  20. VITAMIN D [Concomitant]
     Indication: SUPPLEMENTATION THERAPY
  21. MULTI-VITAMIN [Concomitant]
     Indication: SUPPLEMENTATION THERAPY
  22. TRAMADOL HCL [Concomitant]
     Indication: DRUG USE FOR UNKNOWN INDICATION

REACTIONS (10)
  - ASTHENIA [None]
  - ATRIAL FIBRILLATION [None]
  - COLONIC OBSTRUCTION [None]
  - DEHYDRATION [None]
  - GENITAL HERPES [None]
  - HYDRONEPHROSIS [None]
  - NEPHROLITHIASIS [None]
  - PAIN [None]
  - PROCEDURAL VOMITING [None]
  - RENAL FAILURE [None]
